FAERS Safety Report 5714195-0 (Version None)
Quarter: 2008Q2

REPORT INFORMATION
  Report Type: 
  Country: None (occurrence: None)
  Receive Date: 20080423
  Receipt Date: 20071111
  Transmission Date: 20081010
  Serious: No
  Sender: FDA-Public Use
  Company Number: US-KINGPHARMUSA00001-K200701457

PATIENT

DRUGS (7)
  1. SKELAXIN [Suspect]
     Indication: MUSCLE SPASMS
     Dosage: 800 MG,1-2 TABLETS EVERY 8 HOURS AS NEEDED QD
     Dates: start: 20071106
  2. SKELAXIN [Suspect]
     Indication: BACK PAIN
  3. LORTAB [Suspect]
     Indication: BACK PAIN
     Dosage: 10 MG, UNK
     Route: 048
     Dates: start: 20070807
  4. LORTAB [Suspect]
     Dosage: 7.5 MG, UNK
     Route: 048
  5. LORTAB [Suspect]
     Dosage: 5 MG, EVERY 4- 6 HOURS AS NEEDED
     Route: 048
     Dates: start: 20070801
  6. EXCEDRIN (MIGRAINE) [Concomitant]
     Indication: HEADACHE
     Dosage: UNK, PRN
  7. PEPCID AC [Concomitant]
     Indication: GASTROOESOPHAGEAL REFLUX DISEASE
     Dosage: UNK, PRN

REACTIONS (3)
  - COLD SWEAT [None]
  - FEELING HOT [None]
  - HOT FLUSH [None]
